FAERS Safety Report 10673989 (Version 1)
Quarter: 2014Q4

REPORT INFORMATION
  Report Type: Spontaneous
  Country: US (occurrence: None)
  Receive Date: 20141223
  Receipt Date: 20141223
  Transmission Date: 20150529
  Serious: No
  Sender: FDA-Public Use
  Company Number: None

PATIENT
  Age: 30 Year
  Sex: Female
  Weight: 56.25 kg

DRUGS (2)
  1. MIRENA [Suspect]
     Active Substance: LEVONORGESTREL
     Indication: CONTRACEPTION
     Dosage: 52 MG IMPLANT
     Dates: start: 20141124, end: 20141201
  2. WOMEN^S MULTI VITAMINS [Concomitant]

REACTIONS (10)
  - Suppressed lactation [None]
  - Dysgeusia [None]
  - Erythema [None]
  - Anxiety [None]
  - Dizziness [None]
  - Migraine [None]
  - Thirst decreased [None]
  - Flushing [None]
  - Depression [None]
  - Libido decreased [None]

NARRATIVE: CASE EVENT DATE: 20141126
